FAERS Safety Report 8398023-3 (Version None)
Quarter: 2012Q2

REPORT INFORMATION
  Report Type: 
  Country: None (occurrence: None)
  Receive Date: 20120524
  Receipt Date: 20120508
  Transmission Date: 20120825
  Serious: Yes (Other)
  Sender: FDA-Public Use
  Company Number: DSA_57333_2012

PATIENT
  Sex: Male
  Weight: 78.9 kg

DRUGS (56)
  1. ELIDEL [Suspect]
     Indication: ECZEMA
     Dosage: (BID TOPICAL)
     Route: 061
     Dates: start: 20050317
  2. ARANESP [Concomitant]
  3. PRAMOXINE HYDROCHLORIDE [Concomitant]
  4. MAGNESIUM SULFATE [Concomitant]
  5. SODIUM PHOSPHATE [Concomitant]
  6. POTASSIUM CHLORIDE [Concomitant]
  7. MOXIFLOXACIN [Concomitant]
  8. FLEXERIL [Concomitant]
  9. ETOPOSIDE [Concomitant]
  10. NEULASTA [Concomitant]
  11. OXYCONTIN [Concomitant]
  12. CAMPHOR [Concomitant]
  13. ALKERAN [Concomitant]
  14. ZYRTEC [Concomitant]
  15. AMBIEN [Concomitant]
  16. CHEMOTHERAPEUTICS [Concomitant]
  17. NEXIUM [Concomitant]
  18. VALTREX [Concomitant]
  19. FAMOTIDINE [Concomitant]
  20. COLACE [Concomitant]
  21. PROCARBAZINE HYDROCHLORIDE [Concomitant]
  22. CYTOXAN [Concomitant]
  23. MESNA [Concomitant]
  24. CARBOPLATIN W/ETOPOSIDE/IFOSFAMIDE [Concomitant]
  25. PEPCID [Concomitant]
  26. IBUPROFEN [Concomitant]
  27. LASIX [Concomitant]
  28. ADVAIR DISKUS 100/50 [Concomitant]
  29. PREDNISONE [Concomitant]
  30. EPINEPHRINE [Concomitant]
  31. SODIUM CHLORIDE [Concomitant]
  32. PROTOPIC [Suspect]
     Indication: ECZEMA
     Dosage: (DF)
  33. SUDAFED S.A. [Concomitant]
  34. OXYCODONE HYDROCHLORIDE [Concomitant]
  35. KLONOPIN [Concomitant]
  36. KYTRIL [Concomitant]
  37. ZANTAC [Concomitant]
  38. ALBUTEROL [Concomitant]
  39. COLACE (NOT SPECIFIED) [Suspect]
     Dosage: (100 MG QD ORAL)
     Route: 048
  40. XANAX [Concomitant]
  41. ACETAMINOPHEN [Concomitant]
  42. PROAIR /00972202/ [Concomitant]
  43. MULTI-VITAMINS [Concomitant]
  44. ZOFRAN [Concomitant]
  45. ATIVAN [Concomitant]
  46. SENNA /00142201/ [Concomitant]
  47. VICODIN [Concomitant]
  48. VINCRISTINE [Concomitant]
  49. DECADRON [Concomitant]
  50. HEPARIN [Concomitant]
  51. MINERAL OIL EMULSION [Concomitant]
  52. CYTOSAR-U [Concomitant]
  53. ADRIAMYCIN PFS [Concomitant]
  54. BLEOMYCIN SULFATE [Concomitant]
  55. ASPIRIN [Concomitant]
  56. DIPHENHYDRAMINE HCL [Concomitant]

REACTIONS (34)
  - THYROIDITIS [None]
  - PALPITATIONS [None]
  - DIZZINESS [None]
  - NIGHT SWEATS [None]
  - PYREXIA [None]
  - FEBRILE NEUTROPENIA [None]
  - STEM CELL TRANSPLANT [None]
  - ALANINE AMINOTRANSFERASE INCREASED [None]
  - MUSCULOSKELETAL PAIN [None]
  - HODGKIN'S DISEASE [None]
  - ANXIETY [None]
  - UPPER RESPIRATORY TRACT INFECTION [None]
  - PILONIDAL CYST [None]
  - EOSINOPHILIA [None]
  - ECONOMIC PROBLEM [None]
  - ANAEMIA [None]
  - FATIGUE [None]
  - SYNCOPE [None]
  - FALL [None]
  - DRUG ABUSE [None]
  - LYMPHADENOPATHY [None]
  - ORAL DISORDER [None]
  - WHITE BLOOD CELL COUNT INCREASED [None]
  - BRONCHITIS [None]
  - HEADACHE [None]
  - LACERATION [None]
  - OROPHARYNGEAL PAIN [None]
  - NAUSEA [None]
  - ASPARTATE AMINOTRANSFERASE INCREASED [None]
  - SINUSITIS [None]
  - VOMITING [None]
  - PAIN [None]
  - JAUNDICE [None]
  - ROAD TRAFFIC ACCIDENT [None]
